FAERS Safety Report 8577242-7 (Version None)
Quarter: 2012Q3

REPORT INFORMATION
  Report Type: 
  Country: None (occurrence: None)
  Receive Date: 20120807
  Receipt Date: 20120730
  Transmission Date: 20120928
  Serious: Yes (Other)
  Sender: FDA-Public Use
  Company Number: US-BAYER-2012-047675

PATIENT
  Age: 31 Year
  Sex: Female
  Weight: 88.435 kg

DRUGS (1)
  1. MIRENA [Suspect]
     Indication: CONTRACEPTION
     Dosage: UNK
     Dates: start: 20071130

REACTIONS (3)
  - MASTITIS POSTPARTUM [None]
  - MEDICAL DEVICE COMPLICATION [None]
  - UTERINE PERFORATION [None]
